FAERS Safety Report 15329180 (Version 3)
Quarter: 2018Q3

REPORT INFORMATION
  Report Type: Spontaneous
  Country: US (occurrence: US)
  Receive Date: 20180829
  Receipt Date: 20180919
  Transmission Date: 20181010
  Serious: Yes (Other)
  Sender: FDA-Public Use
  Company Number: US-009507513-1808USA009938

PATIENT
  Age: 39 Year
  Sex: Female
  Weight: 105.22 kg

DRUGS (1)
  1. NEXPLANON [Suspect]
     Active Substance: ETONOGESTREL
     Indication: CONTRACEPTION
     Dosage: ROD IN HER RIGHT ARM, FREQUENCY REPORTED AS 1
     Route: 059
     Dates: start: 20180712

REACTIONS (6)
  - Medical device site discomfort [Not Recovered/Not Resolved]
  - Device dislocation [Recovered/Resolved]
  - Skin irritation [Not Recovered/Not Resolved]
  - Device deployment issue [Recovered/Resolved]
  - Pain of skin [Not Recovered/Not Resolved]
  - Ill-defined disorder [Not Recovered/Not Resolved]

NARRATIVE: CASE EVENT DATE: 2018
